FAERS Safety Report 4465470-1 (Version None)
Quarter: 2004Q3

REPORT INFORMATION
  Report Type: 
  Country: None (occurrence: None)
  Receive Date: 20040930
  Receipt Date: 20040927
  Transmission Date: 20050211
  Serious: Yes (Hospitalization)
  Sender: FDA-Public Use
  Company Number: LTI2004A00153

PATIENT
  Age: 72 Year
  Sex: Male

DRUGS (8)
  1. LEUPRORELIN DEPOT (3M) (LEUPROLIDE ACETATE) ( 11.25 MILLIGRAM, INJECTI [Suspect]
     Indication: PROSTATE CANCER
     Dosage: 11.25 M G (11.25 MG, 1 IN 3 M) DAYS  SUBCUTANEOUS
     Route: 058
     Dates: start: 20031031
  2. FLUTAMIDE (FLUTAMIDE) (250 MILLIGRAM, TABLETS) [Concomitant]
  3. LOPRIL (CAPTOPRIL) (25 MILLIGRAM, TABLETS) [Concomitant]
  4. LASILIX LP (FUROSEMIDE) 60 MILLIGRAM, CAPSULES) [Concomitant]
  5. LASILIX (FUROSEMIDE) (20 MILLIGRAM, TABLETS) [Concomitant]
  6. ATROVENT (IPRATROPIUM BROMIDE) (1 DOSAGE FORMS, INHALANT) [Concomitant]
  7. SYMBICORT (SYMBICORT TRUBUHALER    DRACO) (1 DOSAGE FORMS, INHALANT) [Concomitant]
  8. MOPRAL (OMEPRAZOLE) (20 MILLIGRAM, CAPSULES) [Concomitant]

REACTIONS (3)
  - DYSPHONIA [None]
  - LARYNGEAL CANCER [None]
  - RESPIRATORY FAILURE [None]
